FAERS Safety Report 7760828-7 (Version None)
Quarter: 2011Q3

REPORT INFORMATION
  Report Type: 
  Country: None (occurrence: None)
  Receive Date: 20110919
  Receipt Date: 20110912
  Transmission Date: 20111222
  Serious: Yes (Death, Hospitalization, Other)
  Sender: FDA-Public Use
  Company Number: US-PFIZER INC-2011167319

PATIENT
  Sex: Male
  Weight: 136 kg

DRUGS (7)
  1. LYRICA [Suspect]
     Indication: ANXIETY
     Dosage: 200 MG, 2X/DAY
     Route: 048
     Dates: start: 20080101
  2. DILAUDID [Suspect]
     Indication: PAIN
  3. INSULIN [Concomitant]
     Indication: DIABETES MELLITUS
     Dosage: 30 MG, 2X/DAY
  4. DILAUDID [Suspect]
     Indication: NEUROPATHY PERIPHERAL
     Dosage: 8 MG FIVE TIMES A DAY
     Dates: end: 20110701
  5. VIAGRA [Suspect]
     Indication: ERECTILE DYSFUNCTION
     Dosage: 100 MG, UNK
     Route: 048
  6. LYRICA [Suspect]
     Indication: SLEEP DISORDER
  7. SEROQUEL [Concomitant]
     Indication: SLEEP DISORDER
     Dosage: 100 MG, DAILY
     Dates: start: 20110101

REACTIONS (3)
  - DRUG ABUSE [None]
  - DEATH [None]
  - LOWER LIMB FRACTURE [None]
